FAERS Safety Report 16988627 (Version 1)
Quarter: 2019Q4

REPORT INFORMATION
  Report Type: Spontaneous
  Country: ES (occurrence: ES)
  Receive Date: 20191104
  Receipt Date: 20191104
  Transmission Date: 20200122
  Serious: Yes (Hospitalization)
  Sender: FDA-Public Use
  Company Number: ES-UNICHEM PHARMACEUTICALS (USA) INC-UCM201910-000617

PATIENT
  Age: 56 Year
  Sex: Female

DRUGS (5)
  1. OMEPRAZOLE. [Suspect]
     Active Substance: OMEPRAZOLE
     Indication: HELICOBACTER INFECTION
     Dosage: OMEPRAZOLE 40 MG  BEFORE BREAKFAST AND DINNER
  2. METRONIDAZOLE. [Suspect]
     Active Substance: METRONIDAZOLE
     Route: 048
  3. BISMUTH SUBCITRATE [Suspect]
     Active Substance: BISMUTH SUBCITRATE
     Indication: HELICOBACTER INFECTION
     Dosage: DURING BREAKFAST, LUNCH, AFTERNOON SNACK AND DINNER
  4. METRONIDAZOLE. [Suspect]
     Active Substance: METRONIDAZOLE
     Indication: HELICOBACTER INFECTION
     Dosage: DURING BREAKFAST, LUNCH, AFTERNOON SNACK AND DINNER
     Route: 048
  5. TETRACYCLINE [Suspect]
     Active Substance: TETRACYCLINE
     Indication: HELICOBACTER INFECTION
     Dosage: DURING BREAKFAST, LUNCH, AFTERNOON SNACK AND DINNER

REACTIONS (2)
  - Clostridium difficile infection [Recovering/Resolving]
  - Therapy non-responder [Unknown]
